FAERS Safety Report 8087312-8 (Version None)
Quarter: 2012Q1

REPORT INFORMATION
  Report Type: 
  Country: None (occurrence: None)
  Receive Date: 20120128
  Receipt Date: 20110519
  Transmission Date: 20120608
  Serious: Yes (Hospitalization)
  Sender: FDA-Public Use
  Company Number: US-ABBOTT-11P-163-0720684-00

PATIENT
  Sex: Male
  Weight: 123.49 kg

DRUGS (11)
  1. KLOR-CON [Concomitant]
     Indication: PRODUCT USED FOR UNKNOWN INDICATION
     Route: 048
  2. METHOTREXATE [Concomitant]
     Indication: PRODUCT USED FOR UNKNOWN INDICATION
  3. VICODIN [Concomitant]
     Indication: PRODUCT USED FOR UNKNOWN INDICATION
     Dosage: 5/500MG EVERY 4-6 HOURS AS NEEDED
  4. HUMIRA [Suspect]
     Indication: RHEUMATOID ARTHRITIS
     Dates: start: 20101216, end: 20110401
  5. AUGMENTIN '125' [Suspect]
     Indication: PRODUCT USED FOR UNKNOWN INDICATION
  6. METOLAZONE [Concomitant]
     Indication: BLOOD PRESSURE
     Route: 048
  7. TRAMADOL HCL [Concomitant]
     Indication: PAIN
  8. TRAZODONE HCL [Concomitant]
     Indication: PRODUCT USED FOR UNKNOWN INDICATION
     Dosage: EVERY NIGHT
  9. ACETAMINOPHEN OTC [Concomitant]
     Indication: PAIN
  10. TOPICAL GEL [Concomitant]
     Indication: ARTHRITIS
     Route: 061
  11. FOLIC ACID [Concomitant]
     Indication: PRODUCT USED FOR UNKNOWN INDICATION
     Route: 048

REACTIONS (9)
  - EAR PAIN [None]
  - PSORIASIS [None]
  - CELLULITIS [None]
  - PAIN [None]
  - EAR LOBE INFECTION [None]
  - PYREXIA [None]
  - CHILLS [None]
  - ARTHRALGIA [None]
  - ARTHRITIS [None]
